FAERS Safety Report 23840899 (Version 1)
Quarter: 2024Q2

REPORT INFORMATION
  Report Type: Report from Study
  Country: US (occurrence: US)
  Receive Date: 20240510
  Receipt Date: 20240510
  Transmission Date: 20240716
  Serious: Yes (Other)
  Sender: FDA-Public Use
  Company Number: US-002147023-NVSC2024US098906

PATIENT
  Age: 59 Year
  Sex: Female

DRUGS (1)
  1. KESIMPTA [Suspect]
     Active Substance: OFATUMUMAB
     Indication: Product used for unknown indication
     Dosage: UNK, QW
     Route: 065
     Dates: start: 20140214

REACTIONS (4)
  - Hypogammaglobulinaemia [Unknown]
  - Stress [Unknown]
  - Gait disturbance [Unknown]
  - Product supply issue [Unknown]

NARRATIVE: CASE EVENT DATE: 20240401
